FAERS Safety Report 22996003 (Version 2)
Quarter: 2024Q4

REPORT INFORMATION
  Report Type: Report from Study
  Country: PH (occurrence: PH)
  Receive Date: 20230927
  Receipt Date: 20241128
  Transmission Date: 20250115
  Serious: Yes (Life-Threatening, Hospitalization)
  Sender: SANDOZ
  Company Number: PH-002147023-NVSC2023PH092467

PATIENT
  Age: 47 Year
  Sex: Male
  Weight: 54.4 kg

DRUGS (25)
  1. BEDAQUILINE [Suspect]
     Active Substance: BEDAQUILINE
     Indication: Tuberculosis
     Dosage: 200 MG
     Route: 048
     Dates: start: 20221027
  2. BEDAQUILINE [Suspect]
     Active Substance: BEDAQUILINE
     Dosage: 200 MG
     Route: 048
     Dates: start: 20221219
  3. CLOFAZIMINE [Suspect]
     Active Substance: CLOFAZIMINE
     Indication: Tuberculosis
     Dosage: 100 MG, SOFT GELATIN CAPSULE
     Route: 048
     Dates: start: 20221027
  4. CLOFAZIMINE [Suspect]
     Active Substance: CLOFAZIMINE
     Dosage: 100 MG, SOFT GELATIN CAPSULE
     Route: 048
     Dates: start: 20221219
  5. DELAMANID [Suspect]
     Active Substance: DELAMANID
     Indication: Tuberculosis
     Dosage: 300 MG
     Route: 048
     Dates: start: 20221027
  6. DELAMANID [Suspect]
     Active Substance: DELAMANID
     Dosage: 300 MG
     Route: 048
     Dates: start: 20221219
  7. LEVOFLOXACIN [Suspect]
     Active Substance: LEVOFLOXACIN
     Indication: Tuberculosis
     Dosage: 1000 MG, QD (ONCE DAILY)
     Route: 048
     Dates: start: 20221027
  8. LEVOFLOXACIN [Suspect]
     Active Substance: LEVOFLOXACIN
     Dosage: 1000 MG, QD (ONCE DAILY)
     Route: 048
     Dates: start: 20221219
  9. LINEZOLID [Suspect]
     Active Substance: LINEZOLID
     Indication: Tuberculosis
     Dosage: 1200 MG
     Route: 048
     Dates: start: 20221027, end: 20221122
  10. LINEZOLID [Suspect]
     Active Substance: LINEZOLID
     Dosage: 300 MG
     Route: 048
     Dates: start: 20221219
  11. LINEZOLID [Suspect]
     Active Substance: LINEZOLID
     Dosage: 300 MG, QD (ONCE DAILY)
     Route: 048
     Dates: start: 20221206
  12. ATORVASTATIN [Concomitant]
     Active Substance: ATORVASTATIN
     Indication: Product used for unknown indication
     Dosage: 1 TABLET
     Route: 065
  13. CALCIUM\VITAMIN D [Concomitant]
     Active Substance: CALCIUM\VITAMIN D
     Indication: Product used for unknown indication
     Dosage: 600 MG/400 MG/TABLET, 1 TABLET, OD
     Route: 065
     Dates: start: 20230216, end: 20230513
  14. DABIGATRAN [Concomitant]
     Active Substance: DABIGATRAN
     Indication: Product used for unknown indication
     Dosage: 180 MG (TAKE 2 TABLETS 2X A DAY FOR 3 MONTHS, QUANTITY: 180))
     Route: 048
  15. FERROUS SULFATE [Concomitant]
     Active Substance: FERROUS SULFATE
     Indication: Product used for unknown indication
     Dosage: 525 MG/800 MCG/CAPSULE, 1 CAPSULE, QD
     Route: 065
     Dates: start: 20230216, end: 20230513
  16. GLICLAZIDE [Concomitant]
     Active Substance: GLICLAZIDE
     Indication: Diabetes mellitus
     Dosage: 30 MG
     Route: 065
     Dates: start: 20230526
  17. INSULIN GLARGINE [Concomitant]
     Active Substance: INSULIN GLARGINE
     Indication: Type 2 diabetes mellitus
     Dosage: 16 UNITS, QD
     Route: 058
     Dates: start: 20221108, end: 20221122
  18. INSULIN GLARGINE [Concomitant]
     Active Substance: INSULIN GLARGINE
     Dosage: 14 UNITS, QD
     Route: 058
     Dates: start: 20221123, end: 20230513
  19. ISOSORBIDE MONONITRATE [Concomitant]
     Active Substance: ISOSORBIDE MONONITRATE
     Indication: Product used for unknown indication
     Dosage: 30 MG, TAKE 1 TABLET ONCE A DAY) (QUANTITY: 90)
     Route: 048
  20. LOSARTAN [Concomitant]
     Active Substance: LOSARTAN
     Indication: Product used for unknown indication
     Dosage: 1 TABLET, QD
     Route: 065
  21. MAGNESIUM [Concomitant]
     Active Substance: MAGNESIUM
     Indication: Product used for unknown indication
     Dosage: 200 MG, QD
     Route: 065
     Dates: start: 20230216, end: 20230513
  22. NEBIVOLOL [Concomitant]
     Active Substance: NEBIVOLOL
     Indication: Product used for unknown indication
     Dosage: 5 MG, TAKE 1 TABLET ONCE A DAY (QUANTITY: 90)
     Route: 048
  23. PYRIDOXINE [Concomitant]
     Active Substance: PYRIDOXINE
     Indication: Neuropathy peripheral
     Dosage: 50 MG, QD
     Route: 065
     Dates: start: 20230112
  24. ROSUVASTATIN [Concomitant]
     Active Substance: ROSUVASTATIN
     Indication: Prophylaxis
     Dosage: 5 MG, QD
     Route: 065
     Dates: start: 20221123, end: 20230513
  25. SPIRONOLACTONE [Concomitant]
     Active Substance: SPIRONOLACTONE
     Indication: Product used for unknown indication
     Dosage: 25 MG, TAKE 1/2 TABLET ONCE A DAY (QUANTITY: 45))
     Route: 048

REACTIONS (3)
  - Hypertensive crisis [Recovering/Resolving]
  - Cardiac failure [Recovered/Resolved]
  - Anaemia [Recovered/Resolved]

NARRATIVE: CASE EVENT DATE: 20230420
